FAERS Safety Report 22101262 (Version 2)
Quarter: 2023Q2

REPORT INFORMATION
  Report Type: Spontaneous
  Country: US (occurrence: None)
  Receive Date: 20230316
  Receipt Date: 20230411
  Transmission Date: 20230722
  Serious: No
  Sender: FDA-Public Use
  Company Number: 2023A058744

PATIENT
  Age: 903 Month
  Sex: Female

DRUGS (7)
  1. BYETTA [Suspect]
     Active Substance: EXENATIDE
     Indication: Type 2 diabetes mellitus
     Route: 058
     Dates: start: 202302
  2. LEVEMIR [Concomitant]
     Active Substance: INSULIN DETEMIR
  3. LANTUS [Concomitant]
     Active Substance: INSULIN GLARGINE
  4. NOVOLOG [Concomitant]
     Active Substance: INSULIN ASPART
  5. HUMALOG [Concomitant]
     Active Substance: INSULIN LISPRO
  6. NOVOLIN NOS [Concomitant]
     Active Substance: INSULIN HUMAN
  7. VICTOZA [Concomitant]
     Active Substance: LIRAGLUTIDE

REACTIONS (12)
  - Peripheral swelling [Not Recovered/Not Resolved]
  - Fluid retention [Not Recovered/Not Resolved]
  - Musculoskeletal discomfort [Unknown]
  - Lymphoedema [Unknown]
  - Reaction to preservatives [Not Recovered/Not Resolved]
  - Intentional product misuse [Not Recovered/Not Resolved]
  - Blood glucose increased [Unknown]
  - Dyspepsia [Not Recovered/Not Resolved]
  - Pain in extremity [Unknown]
  - Gait disturbance [Unknown]
  - Balance disorder [Unknown]
  - Blister [Not Recovered/Not Resolved]

NARRATIVE: CASE EVENT DATE: 20230201
